FAERS Safety Report 10671128 (Version 1)
Quarter: 2014Q4

REPORT INFORMATION
  Report Type: Spontaneous
  Country: TW (occurrence: TW)
  Receive Date: 20141223
  Receipt Date: 20141223
  Transmission Date: 20150529
  Serious: Yes (Other)
  Sender: FDA-Public Use
  Company Number: TW-009507513-1412TWN010341

PATIENT
  Age: 66 Year
  Sex: Male

DRUGS (1)
  1. ERTAPENEM SODIUM [Suspect]
     Active Substance: ERTAPENEM SODIUM
     Indication: PNEUMONIA ASPIRATION
     Dosage: 500 MG, QD, ACCUMULATIVE DOSE 2000MG

REACTIONS (2)
  - Neurotoxicity [Recovered/Resolved]
  - Disorientation [Recovered/Resolved]
